FAERS Safety Report 9373217 (Version 1)
Quarter: 2013Q2

REPORT INFORMATION
  Report Type: Spontaneous
  Country: US (occurrence: US)
  Receive Date: 20130627
  Receipt Date: 20130627
  Transmission Date: 20140414
  Serious: Yes (Other)
  Sender: FDA-Public Use
  Company Number: US-GLAXOSMITHKLINE-A0807523A

PATIENT
  Age: 60 Year
  Sex: Female

DRUGS (8)
  1. AVANDIA [Suspect]
     Indication: TYPE 2 DIABETES MELLITUS
     Dosage: 8MG PER DAY
     Route: 048
     Dates: start: 20020104, end: 20070705
  2. CARDIZEM [Concomitant]
  3. DIOVAN HCTZ [Concomitant]
  4. LIPITOR [Concomitant]
  5. METFORMIN [Concomitant]
  6. CELEXA [Concomitant]
  7. ASPIRIN [Concomitant]
  8. NEURONTIN [Concomitant]

REACTIONS (1)
  - Myocardial infarction [Unknown]
